FAERS Safety Report 21380205 (Version 1)
Quarter: 2022Q3

REPORT INFORMATION
  Report Type: Spontaneous
  Country: US (occurrence: None)
  Receive Date: 20220923
  Receipt Date: 20220923
  Transmission Date: 20221027
  Serious: No
  Sender: FDA-Public Use
  Company Number: None

PATIENT
  Sex: Female
  Weight: 78.93 kg

DRUGS (7)
  1. CAPECITABINE [Suspect]
     Active Substance: CAPECITABINE
     Indication: Pancreatic carcinoma
     Dosage: 1500MG  TQWICE DAILY   ORAL-21 D ON, 7 D OFF;?
     Route: 050
     Dates: start: 20220810
  2. ATORVASTATIN [Concomitant]
     Active Substance: ATORVASTATIN
  3. CALCIUM CITRATE+ D3 MAXIMUM [Concomitant]
  4. IBUPROFEN [Concomitant]
     Active Substance: IBUPROFEN
  5. METOPROLOL [Concomitant]
     Active Substance: METOPROLOL
  6. PEPCID [Concomitant]
     Active Substance: FAMOTIDINE
  7. POTASSIUM CHLORIDE [Concomitant]
     Active Substance: POTASSIUM CHLORIDE

REACTIONS (2)
  - Full blood count abnormal [None]
  - Therapy interrupted [None]
